FAERS Safety Report 19457021 (Version 1)
Quarter: 2021Q2

REPORT INFORMATION
  Report Type: Spontaneous
  Country: US (occurrence: US)
  Receive Date: 20210624
  Receipt Date: 20210624
  Transmission Date: 20210717
  Serious: Yes (Other)
  Sender: FDA-Public Use
  Company Number: US-PFIZER INC-2021681246

PATIENT
  Age: 12 Year
  Sex: Male

DRUGS (16)
  1. METRONIDAZOLE. [Suspect]
     Active Substance: METRONIDAZOLE
     Indication: CHRONIC GRANULOMATOUS DISEASE
     Dosage: UNK
  2. MESALAMINE. [Concomitant]
     Active Substance: MESALAMINE
     Indication: COLITIS
  3. METRONIDAZOLE. [Suspect]
     Active Substance: METRONIDAZOLE
     Indication: COLITIS
  4. DOXYCYCLINE. [Concomitant]
     Active Substance: DOXYCYCLINE
     Indication: COLITIS
  5. VANCOMYCIN [Concomitant]
     Active Substance: VANCOMYCIN
     Indication: ANTIBIOTIC THERAPY
  6. DOXYCYCLINE. [Concomitant]
     Active Substance: DOXYCYCLINE
     Indication: ANTIBIOTIC THERAPY
  7. MESALAMINE. [Concomitant]
     Active Substance: MESALAMINE
     Indication: CHRONIC GRANULOMATOUS DISEASE
     Dosage: UNK
  8. DOXYCYCLINE. [Concomitant]
     Active Substance: DOXYCYCLINE
     Indication: CHRONIC GRANULOMATOUS DISEASE
     Dosage: UNK
  9. VANCOMYCIN [Concomitant]
     Active Substance: VANCOMYCIN
     Indication: CHRONIC GRANULOMATOUS DISEASE
     Dosage: UNK
  10. VANCOMYCIN [Concomitant]
     Active Substance: VANCOMYCIN
     Indication: COLITIS
  11. AMOXICILLIN. [Concomitant]
     Active Substance: AMOXICILLIN
     Indication: CHRONIC GRANULOMATOUS DISEASE
     Dosage: UNK
  12. AMOXICILLIN. [Concomitant]
     Active Substance: AMOXICILLIN
     Indication: ANTIBIOTIC THERAPY
  13. PREDNISONE. [Concomitant]
     Active Substance: PREDNISONE
     Indication: COLITIS
  14. METRONIDAZOLE. [Suspect]
     Active Substance: METRONIDAZOLE
     Indication: ANTIBIOTIC THERAPY
  15. AMOXICILLIN. [Concomitant]
     Active Substance: AMOXICILLIN
     Indication: COLITIS
  16. PREDNISONE. [Concomitant]
     Active Substance: PREDNISONE
     Indication: CHRONIC GRANULOMATOUS DISEASE
     Dosage: UNK

REACTIONS (3)
  - Off label use [Unknown]
  - Neurotoxicity [Recovered/Resolved]
  - Ataxia [Recovered/Resolved]
